FAERS Safety Report 5518046-9 (Version None)
Quarter: 2007Q4

REPORT INFORMATION
  Report Type: 
  Country: None (occurrence: None)
  Receive Date: 20071115
  Receipt Date: 20071106
  Transmission Date: 20080405
  Serious: Yes (Death)
  Sender: FDA-Public Use
  Company Number: IT-JNJFOC-20071007293

PATIENT
  Sex: Male
  Weight: 48 kg

DRUGS (7)
  1. PREZISTA [Suspect]
     Indication: HIV TEST POSITIVE
     Route: 048
  2. TRUVADA [Suspect]
     Indication: HIV TEST POSITIVE
  3. FUZEON [Suspect]
     Indication: HIV TEST POSITIVE
     Route: 058
  4. PAROMOMICINA [Concomitant]
     Indication: CRYPTOSPORIDIOSIS INFECTION
     Route: 048
  5. SODIUM BICARBONATE [Concomitant]
     Indication: ACIDOSIS
     Route: 042
  6. TPN [Concomitant]
     Indication: DRUG USE FOR UNKNOWN INDICATION
  7. OCTREOTIDE ACETATE [Concomitant]
     Indication: DIARRHOEA

REACTIONS (2)
  - CRYPTOSPORIDIOSIS INFECTION [None]
  - METABOLIC ACIDOSIS [None]
